FAERS Safety Report 5632980-0 (Version None)
Quarter: 2008Q1

REPORT INFORMATION
  Report Type: 
  Country: None (occurrence: None)
  Receive Date: 20080221
  Receipt Date: 20080214
  Transmission Date: 20080703
  Serious: Yes (Hospitalization)
  Sender: FDA-Public Use
  Company Number: IT-JNJFOC-20080203498

PATIENT
  Age: 45 Year
  Sex: Female

DRUGS (3)
  1. CAELYX [Suspect]
     Indication: OVARIAN STROMAL CANCER
     Route: 042
  2. EPREX [Suspect]
     Indication: ANAEMIA
     Route: 065
  3. GEMCITABINE [Suspect]
     Indication: OVARIAN STROMAL CANCER
     Route: 042

REACTIONS (2)
  - ACUTE MYOCARDIAL INFARCTION [None]
  - CORONARY ARTERY THROMBOSIS [None]
